FAERS Safety Report 9559143 (Version 3)
Quarter: 2014Q1

REPORT INFORMATION
  Report Type: Spontaneous
  Country: US (occurrence: US)
  Receive Date: 20130927
  Receipt Date: 20140130
  Transmission Date: 20141002
  Serious: Yes (Other)
  Sender: FDA-Public Use
  Company Number: US-ASTRAZENECA-2013SE69073

PATIENT
  Age: 75 Year
  Sex: Female
  Weight: 79.4 kg

DRUGS (14)
  1. PULMICORT FLEXHALER [Suspect]
     Indication: ASTHMA
     Route: 055
  2. PULMICORT FLEXHALER [Suspect]
     Indication: CHRONIC OBSTRUCTIVE PULMONARY DISEASE
     Route: 055
  3. PULMICORT FLEXHALER [Suspect]
     Indication: ASTHMA
     Dosage: 180 MCG 2 PUFFS BID
     Route: 055
     Dates: start: 20130815
  4. PULMICORT FLEXHALER [Suspect]
     Indication: CHRONIC OBSTRUCTIVE PULMONARY DISEASE
     Dosage: 180 MCG 2 PUFFS BID
     Route: 055
     Dates: start: 20130815
  5. PULMICORT FLEXHALER [Suspect]
     Indication: ASTHMA
     Dosage: 180 MCG 2 PUFFS BID
     Route: 055
     Dates: start: 20130805, end: 20140118
  6. PULMICORT FLEXHALER [Suspect]
     Indication: CHRONIC OBSTRUCTIVE PULMONARY DISEASE
     Dosage: 180 MCG 2 PUFFS BID
     Route: 055
     Dates: start: 20130805, end: 20140118
  7. PULMICORT FLEXHALER [Suspect]
     Indication: ASTHMA
     Dosage: 90 MCG 2 PUFFS BID
     Route: 055
     Dates: start: 20140119
  8. PULMICORT FLEXHALER [Suspect]
     Indication: CHRONIC OBSTRUCTIVE PULMONARY DISEASE
     Dosage: 90 MCG 2 PUFFS BID
     Route: 055
     Dates: start: 20140119
  9. SYMBICORT [Suspect]
     Indication: ASTHMA
     Dosage: 80/4.5, TWO PUFFS, TWICE DAILY
     Route: 055
     Dates: start: 20131123, end: 201401
  10. FORADIL [Concomitant]
     Dosage: 1-2 PUFFS BID
     Route: 055
  11. BRONKAID [Concomitant]
  12. GUAIFENESIN [Concomitant]
     Indication: COUGH
     Dosage: PRN
     Route: 048
  13. PSEUDOEPHEDRINE [Concomitant]
     Indication: NASAL CONGESTION
     Dosage: 1 PILL
     Route: 048
  14. XOPENEX HFA [Concomitant]
     Dosage: PRESCRIBED UP TO 4 X, DAILY
     Route: 055

REACTIONS (26)
  - Bronchospasm [Unknown]
  - Muscle spasms [Unknown]
  - Pain in extremity [Recovered/Resolved]
  - Pain in extremity [Unknown]
  - Muscle spasms [Unknown]
  - Limb discomfort [Recovered/Resolved]
  - Muscle spasms [Unknown]
  - Dyspnoea [Unknown]
  - Pain [Unknown]
  - Nasal congestion [Unknown]
  - Back pain [Unknown]
  - Chest discomfort [Unknown]
  - Urinary incontinence [Unknown]
  - Muscular weakness [Unknown]
  - Head discomfort [Unknown]
  - Visual acuity reduced [Unknown]
  - Adverse event [Unknown]
  - Body height decreased [Unknown]
  - Condition aggravated [Recovering/Resolving]
  - Dyspnoea exertional [Recovering/Resolving]
  - Anxiety [Unknown]
  - Nervousness [Unknown]
  - Cough [Unknown]
  - Anxiety [Unknown]
  - Rash [Unknown]
  - Intentional drug misuse [Unknown]
